FAERS Safety Report 25227492 (Version 9)
Quarter: 2025Q3

REPORT INFORMATION
  Report Type: Report from Study
  Country: US (occurrence: US)
  Receive Date: 20250422
  Receipt Date: 20250821
  Transmission Date: 20251021
  Serious: Yes (Other)
  Sender: SUNOVION
  Company Number: US-SUMITOMO PHARMA SWITZERLAND GMBH-2025SPA004636

PATIENT
  Age: 70 Year
  Sex: Male

DRUGS (1)
  1. ORGOVYX [Suspect]
     Active Substance: RELUGOLIX
     Indication: Prostate cancer
     Dosage: 120 MG, QD
     Route: 048
     Dates: start: 20250409

REACTIONS (10)
  - Urinary retention [Recovering/Resolving]
  - Bladder obstruction [Unknown]
  - Bone lesion [Unknown]
  - Dysuria [Recovering/Resolving]
  - Somnolence [Unknown]
  - Biopsy [Unknown]
  - Feeling abnormal [Unknown]
  - Fatigue [Recovered/Resolved]
  - Asthenia [Unknown]
  - Incorrect dose administered [Unknown]
